FAERS Safety Report 5078093-0 (Version None)
Quarter: 2006Q3

REPORT INFORMATION
  Report Type: 
  Country: None (occurrence: None)
  Receive Date: 20060720
  Receipt Date: 20060322
  Transmission Date: 20061208
  Serious: Yes (Hospitalization)
  Sender: FDA-Public Use
  Company Number: 2006MP000476

PATIENT
  Age: 61 Year
  Sex: Female

DRUGS (6)
  1. AGGRASTAT [Suspect]
     Dosage: IV
     Route: 042
  2. VIOXX [Concomitant]
     Indication: OSTEOARTHRITIS
     Dosage: 25 MG;QD;PO
     Route: 048
     Dates: end: 20040821
  3. ASPIRIN [Suspect]
     Dosage: 100 MG;QD;PO
     Route: 048
  4. CLOPIDOGREL BISULFATE [Suspect]
     Dosage: 75 MG;QD;PO
     Route: 048
     Dates: start: 20040820, end: 20040821
  5. PROPOXYPHENE HYDROCHLORIDE [Concomitant]
  6. SIMVASTATIN [Concomitant]

REACTIONS (4)
  - ACUTE MYOCARDIAL INFARCTION [None]
  - CHEST PAIN [None]
  - DYSPNOEA [None]
  - GASTROINTESTINAL HAEMORRHAGE [None]
